FAERS Safety Report 4828257-3 (Version None)
Quarter: 2005Q4

REPORT INFORMATION
  Report Type: 
  Country: None (occurrence: None)
  Receive Date: 20051115
  Receipt Date: 20050907
  Transmission Date: 20060501
  Serious: No
  Sender: FDA-Public Use
  Company Number: US-BRISTOL-MYERS SQUIBB COMPANY-13102942

PATIENT
  Age: 39 Year
  Sex: Male
  Weight: 59 kg

DRUGS (3)
  1. SUSTIVA [Suspect]
     Indication: HIV INFECTION
     Route: 048
     Dates: start: 20050826, end: 20050902
  2. TRUVADA [Concomitant]
  3. DIFLUCAN [Concomitant]

REACTIONS (3)
  - ANXIETY [None]
  - MIGRAINE [None]
  - PYREXIA [None]
